FAERS Safety Report 4616971-4 (Version None)
Quarter: 2005Q2

REPORT INFORMATION
  Report Type: 
  Country: None (occurrence: None)
  Receive Date: 20050311
  Receipt Date: 20050114
  Transmission Date: 20051028
  Serious: No
  Sender: FDA-Public Use
  Company Number: 2005-BP-00640BP

PATIENT
  Sex: Female

DRUGS (7)
  1. SPIRIVA [Suspect]
     Indication: CHRONIC OBSTRUCTIVE PULMONARY DISEASE
     Dosage: 18 MCG (18 MCG, 1 CAPSULE QD), IH
     Route: 055
     Dates: start: 20041001
  2. ALBUTEROL [Concomitant]
  3. PROTONIX [Concomitant]
  4. ESTRADIOL [Concomitant]
  5. CORTEF [Concomitant]
  6. OXYGEN (OXYGEN) [Concomitant]
  7. BUDESONIDE [Concomitant]

REACTIONS (2)
  - DRY MOUTH [None]
  - STOMATITIS [None]
